FAERS Safety Report 8311828-X (Version None)
Quarter: 2012Q2

REPORT INFORMATION
  Report Type: 
  Country: None (occurrence: None)
  Receive Date: 20120425
  Receipt Date: 20120419
  Transmission Date: 20120825
  Serious: Yes (Other)
  Sender: FDA-Public Use
  Company Number: BR-PFIZER INC-2012004218

PATIENT
  Age: 61 Year
  Sex: Female

DRUGS (2)
  1. LYRICA [Concomitant]
     Indication: BACK PAIN
     Dosage: UNK
  2. CELEBREX [Suspect]
     Indication: JOINT INJURY
     Dosage: 200 MG, 1X/DAY
     Route: 048
     Dates: start: 20090804, end: 20090915

REACTIONS (3)
  - SPINAL CORD DISORDER [None]
  - FLUID RETENTION [None]
  - URINARY TRACT INFECTION [None]
